FAERS Safety Report 23334028 (Version 1)
Quarter: 2023Q4

REPORT INFORMATION
  Report Type: Spontaneous
  Country: GB (occurrence: GB)
  Receive Date: 20231223
  Receipt Date: 20231223
  Transmission Date: 20240110
  Serious: Yes (Life-Threatening, Disabling, Other)
  Sender: FDA-Public Use
  Company Number: None

PATIENT
  Age: 23 Year
  Sex: Female

DRUGS (1)
  1. TOPIRAMATE [Suspect]
     Active Substance: TOPIRAMATE
     Indication: Migraine
     Dosage: 5G
     Dates: start: 20231102, end: 20231128

REACTIONS (2)
  - Suicidal behaviour [Recovering/Resolving]
  - Bipolar I disorder [Unknown]

NARRATIVE: CASE EVENT DATE: 20231122
